FAERS Safety Report 11415669 (Version 1)
Quarter: 2015Q3

REPORT INFORMATION
  Report Type: Spontaneous
  Country: US (occurrence: None)
  Receive Date: 20150824
  Receipt Date: 20150824
  Transmission Date: 20151125
  Serious: No
  Sender: FDA-Public Use
  Company Number: None

PATIENT
  Age: 55 Year
  Sex: Female

DRUGS (3)
  1. ETODOLAC. [Concomitant]
     Active Substance: ETODOLAC
  2. IBRANCE [Suspect]
     Active Substance: PALBOCICLIB
     Indication: BREAST CANCER
     Route: 048
     Dates: start: 201503, end: 20150820
  3. LETROZOLE. [Concomitant]
     Active Substance: LETROZOLE

REACTIONS (2)
  - White blood cell count decreased [None]
  - Paraesthesia [None]

NARRATIVE: CASE EVENT DATE: 20150820
